FAERS Safety Report 11620891 (Version 2)
Quarter: 2015Q4

REPORT INFORMATION
  Report Type: Spontaneous
  Country: SE (occurrence: SE)
  Receive Date: 20151012
  Receipt Date: 20151030
  Transmission Date: 20160304
  Serious: Yes (Disabling)
  Sender: FDA-Public Use
  Company Number: SE-BAUSCH-BL-2015-023346

PATIENT
  Age: 63 Year
  Sex: Female

DRUGS (2)
  1. METRONIDAZOLE. [Suspect]
     Active Substance: METRONIDAZOLE
     Indication: ABDOMINAL ABSCESS
     Route: 048
     Dates: start: 20150618, end: 20150714
  2. CIPROFLOXACIN. [Suspect]
     Active Substance: CIPROFLOXACIN
     Indication: ABDOMINAL ABSCESS
     Route: 048
     Dates: start: 20150618, end: 20150726

REACTIONS (1)
  - Polyneuropathy [Not Recovered/Not Resolved]

NARRATIVE: CASE EVENT DATE: 20150706
